FAERS Safety Report 7344132-7 (Version None)
Quarter: 2011Q1

REPORT INFORMATION
  Report Type: 
  Country: None (occurrence: None)
  Receive Date: 20110310
  Receipt Date: 20100628
  Transmission Date: 20110831
  Serious: No
  Sender: FDA-Public Use
  Company Number: A0867564A

PATIENT
  Age: 39 Year
  Sex: Female
  Weight: 75 kg

DRUGS (9)
  1. TOPAMAX [Concomitant]
  2. CLARITIN [Concomitant]
  3. LOVAZA [Concomitant]
  4. VERAPAMIL [Concomitant]
  5. LEVOTHYROXINE [Concomitant]
  6. OXYCODONE HCL AND ACETAMINOPHEN [Concomitant]
  7. NICORETTE [Suspect]
     Indication: SMOKING CESSATION THERAPY
     Dates: start: 20100607, end: 20100630
  8. EFFEXOR [Concomitant]
  9. FLEXERIL [Concomitant]

REACTIONS (2)
  - HEADACHE [None]
  - PAIN IN JAW [None]
